FAERS Safety Report 12237162 (Version 1)
Quarter: 2016Q2

REPORT INFORMATION
  Report Type: Spontaneous
  Country: US (occurrence: US)
  Receive Date: 20160405
  Receipt Date: 20160405
  Transmission Date: 20160815
  Serious: No
  Sender: FDA-Public Use
  Company Number: US-BAYER-2016-064138

PATIENT
  Age: 54 Year
  Sex: Male
  Weight: 81.63 kg

DRUGS (1)
  1. ALEVE PM [Suspect]
     Active Substance: DIPHENHYDRAMINE HYDROCHLORIDE\NAPROXEN SODIUM
     Indication: BACK PAIN
     Dosage: 1 DF, QD
     Route: 048
     Dates: start: 20160328, end: 20160329

REACTIONS (6)
  - Product use issue [None]
  - Sleep disorder [Recovered/Resolved]
  - Sleep disorder [Recovered/Resolved]
  - Insomnia [None]
  - Agitation [Recovered/Resolved]
  - Insomnia [None]

NARRATIVE: CASE EVENT DATE: 20160328
